FAERS Safety Report 7050057-7 (Version None)
Quarter: 2010Q4

REPORT INFORMATION
  Report Type: 
  Country: None (occurrence: None)
  Receive Date: 20101018
  Receipt Date: 20101012
  Transmission Date: 20110411
  Serious: Yes (Other)
  Sender: FDA-Public Use
  Company Number: US-AMGEN LTD.-QUU444932

PATIENT

DRUGS (7)
  1. NPLATE [Suspect]
     Indication: IDIOPATHIC THROMBOCYTOPENIC PURPURA
     Dosage: 150 A?G, QWK
     Dates: start: 20100805
  2. ALPRAZOLAM [Concomitant]
     Dosage: 1 MG, QID
  3. CARBIDOPA [Concomitant]
     Dosage: 75 MG, QID
  4. ENTACAPONE [Concomitant]
     Dosage: 200 MG, QID
  5. PRAMINPEXOLE DIHYDROCHLORIDE [Concomitant]
     Dosage: 1 MG, QID
  6. LEVOTHYROXINE SODIUM [Concomitant]
     Dosage: 50 A?G, QD
  7. TRAZODONE HCL [Concomitant]
     Dosage: UNK UNK, PRN

REACTIONS (1)
  - FALL [None]
